FAERS Safety Report 4796548-0 (Version None)
Quarter: 2005Q3

REPORT INFORMATION
  Report Type: 
  Country: None (occurrence: None)
  Receive Date: 20050916
  Receipt Date: 20041006
  Transmission Date: 20060218
  Serious: Yes (Hospitalization)
  Sender: FDA-Public Use
  Company Number: US-JNJFOC-20041002989

PATIENT
  Age: 71 Year
  Sex: Female
  Weight: 44.4525 kg

DRUGS (4)
  1. TOPAMAX [Suspect]
     Indication: NEURALGIA
     Dosage: 25 MG, ORAL
     Route: 048
  2. HIGH BLOOD PRESSURE (ANTIHYPERTENSIVES) [Concomitant]
  3. DETROL [Concomitant]
  4. ADVIL [Concomitant]

REACTIONS (5)
  - COUGH [None]
  - HEADACHE [None]
  - PAIN [None]
  - PNEUMONIA [None]
  - UPPER RESPIRATORY TRACT INFECTION [None]
